FAERS Safety Report 4363124-3 (Version None)
Quarter: 2004Q2

REPORT INFORMATION
  Report Type: 
  Country: None (occurrence: None)
  Receive Date: 20040521
  Receipt Date: 20040521
  Transmission Date: 20050107
  Serious: Yes (Other)
  Sender: FDA-Public Use
  Company Number: None

PATIENT
  Age: 1 Year
  Sex: Female
  Weight: 9.9791 kg

DRUGS (1)
  1. DIMETAPP [Suspect]
     Indication: COUGH
     Dosage: 2.4 ML X 1 DOSE ORAL
     Route: 048
     Dates: start: 20040512, end: 20040512

REACTIONS (3)
  - ACCIDENTAL OVERDOSE [None]
  - MEDICATION ERROR [None]
  - PSYCHOMOTOR HYPERACTIVITY [None]
